FAERS Safety Report 4606147-9 (Version None)
Quarter: 2005Q1

REPORT INFORMATION
  Report Type: 
  Country: None (occurrence: None)
  Receive Date: 20050303
  Receipt Date: 20041210
  Transmission Date: 20050727
  Serious: No
  Sender: FDA-Public Use
  Company Number: 200421151BWH

PATIENT
  Age: 53 Year
  Sex: Male

DRUGS (4)
  1. LEVITRA [Suspect]
     Indication: ERECTILE DYSFUNCTION
     Dosage: 10 MG, ONCE, ORAL; SEE IMAGE
     Route: 048
     Dates: start: 20040101
  2. LEVITRA [Suspect]
     Indication: ERECTILE DYSFUNCTION
     Dosage: 10 MG, ONCE, ORAL; SEE IMAGE
     Route: 048
     Dates: start: 20040101
  3. LEVITRA [Suspect]
     Indication: ERECTILE DYSFUNCTION
     Dosage: 10 MG, ONCE, ORAL; SEE IMAGE
     Route: 048
     Dates: start: 20041101
  4. LISINOPRIL [Concomitant]

REACTIONS (1)
  - ERECTILE DYSFUNCTION [None]
